FAERS Safety Report 7319652-1 (Version None)
Quarter: 2011Q1

REPORT INFORMATION
  Report Type: 
  Country: None (occurrence: None)
  Receive Date: 20110228
  Receipt Date: 20100622
  Transmission Date: 20110831
  Serious: No
  Sender: FDA-Public Use
  Company Number: A0868314A

PATIENT
  Sex: Female

DRUGS (4)
  1. METFORMIN [Concomitant]
  2. ZYPREXA [Concomitant]
  3. CLONIDINE [Concomitant]
  4. LAMICTAL [Suspect]
     Indication: BIPOLAR DISORDER

REACTIONS (2)
  - DRUG EXPOSURE DURING PREGNANCY [None]
  - ADVERSE EVENT [None]
